FAERS Safety Report 5012774-X (Version None)
Quarter: 2006Q2

REPORT INFORMATION
  Report Type: 
  Country: None (occurrence: None)
  Receive Date: 20060530
  Receipt Date: 20060222
  Transmission Date: 20061013
  Serious: No
  Sender: FDA-Public Use
  Company Number: US-BRISTOL-MYERS SQUIBB COMPANY-13292891

PATIENT
  Age: 56 Year
  Sex: Male
  Weight: 118 kg

DRUGS (9)
  1. ERBITUX [Suspect]
     Indication: COLON CANCER METASTATIC
     Dosage: INITIALLY REC'D 21 DOSES TOTAL/SECOND COURSE=03-JAN-2006 400 MG/M2 IV F/B 250 MG/M2 IV WEEKLY.
     Route: 042
     Dates: start: 20050101, end: 20050101
  2. BENADRYL [Concomitant]
     Indication: PREMEDICATION
     Route: 042
  3. FLUOROURACIL [Concomitant]
  4. IRINOTECAN HCL [Concomitant]
  5. KETOCONAZOLE [Concomitant]
  6. LORAZEPAM [Concomitant]
  7. MIRTAZAPINE [Concomitant]
  8. PYRIDOXINE HCL [Concomitant]
  9. TYLENOL (GELTAB) [Concomitant]
     Indication: PREMEDICATION
     Route: 048

REACTIONS (1)
  - DERMATITIS ACNEIFORM [None]
